FAERS Safety Report 19960456 (Version 1)
Quarter: 2021Q4

REPORT INFORMATION
  Report Type: Spontaneous
  Country: US (occurrence: US)
  Receive Date: 20211015
  Receipt Date: 20211015
  Transmission Date: 20220304
  Serious: No
  Sender: FDA-Public Use
  Company Number: US-JNJFOC-20211014454

PATIENT

DRUGS (1)
  1. ZYRTEC [Suspect]
     Active Substance: CETIRIZINE HYDROCHLORIDE
     Indication: Product used for unknown indication
     Dosage: TOOK A ZYRTEC THIS MORNING WITH BREAKFAST AND  FORGOT THAT SHE/HE TOOK IT. SO TOOK ANOTHER ONE,
     Route: 065

REACTIONS (1)
  - Accidental overdose [Unknown]
